FAERS Safety Report 6735075-8 (Version None)
Quarter: 2010Q2

REPORT INFORMATION
  Report Type: 
  Country: None (occurrence: None)
  Receive Date: 20100521
  Receipt Date: 20100511
  Transmission Date: 20101027
  Serious: No
  Sender: FDA-Public Use
  Company Number: US-JNJFOC-20100504392

PATIENT
  Sex: Female
  Weight: 87.09 kg

DRUGS (2)
  1. FENTANYL CITRATE [Suspect]
     Indication: PAIN
     Dosage: NDC# 0781-7111-55
     Route: 062
  2. UNKNOWN MEDICATION [Concomitant]
     Indication: PAIN

REACTIONS (4)
  - PAIN [None]
  - PRODUCT QUALITY ISSUE [None]
  - THERAPEUTIC RESPONSE DECREASED [None]
  - TREATMENT NONCOMPLIANCE [None]
